FAERS Safety Report 20499654 (Version 1)
Quarter: 2022Q1

REPORT INFORMATION
  Report Type: Spontaneous
  Country: US (occurrence: US)
  Receive Date: 20220222
  Receipt Date: 20220222
  Transmission Date: 20220423
  Serious: No
  Sender: FDA-Public Use
  Company Number: US-UCBSA-2021032748

PATIENT
  Sex: Male

DRUGS (3)
  1. KEPPRA [Interacting]
     Active Substance: LEVETIRACETAM
     Indication: Product used for unknown indication
     Dosage: UNK
  2. PNEUMOCOCCAL VACCINE POLYVALENT [Suspect]
     Active Substance: PNEUMOCOCCAL VACCINE POLYVALENT
     Indication: Product used for unknown indication
     Dosage: UNK
  3. LIBRIUM [Concomitant]
     Active Substance: CHLORDIAZEPOXIDE HYDROCHLORIDE
     Indication: Alcohol withdrawal syndrome
     Dosage: UNK

REACTIONS (21)
  - Seizure [Unknown]
  - Dysgeusia [Unknown]
  - Anosmia [Unknown]
  - Ageusia [Unknown]
  - Muscle twitching [Unknown]
  - Vision blurred [Unknown]
  - Abdominal pain [Unknown]
  - Disturbance in attention [Unknown]
  - Rash [Unknown]
  - Dyspnoea [Unknown]
  - Fall [Unknown]
  - Asthenia [Unknown]
  - Alopecia [Unknown]
  - Back disorder [Unknown]
  - Loss of consciousness [Unknown]
  - Adverse drug reaction [Unknown]
  - Fatigue [Unknown]
  - Salivary hypersecretion [Unknown]
  - Dizziness [Unknown]
  - Weight decreased [Unknown]
  - Drug interaction [Unknown]
